FAERS Safety Report 19919092 (Version 1)
Quarter: 2021Q4

REPORT INFORMATION
  Report Type: Report from Study
  Country: CN (occurrence: CN)
  Receive Date: 20211005
  Receipt Date: 20211005
  Transmission Date: 20220303
  Serious: Yes (Hospitalization)
  Sender: FDA-Public Use
  Company Number: CN-BRACCO-2020CN05507

PATIENT
  Age: 62 Year
  Sex: Female

DRUGS (4)
  1. SULFUR HEXAFLUORIDE [Suspect]
     Active Substance: SULFUR HEXAFLUORIDE
     Indication: Ultrasound breast
     Dosage: 4.8 ML, SINGLE
     Route: 042
     Dates: start: 20190402, end: 20190402
  2. SULFUR HEXAFLUORIDE [Suspect]
     Active Substance: SULFUR HEXAFLUORIDE
     Indication: Ultrasound breast
     Dosage: 4.8 ML, SINGLE
     Route: 042
     Dates: start: 20190402, end: 20190402
  3. SULFUR HEXAFLUORIDE [Suspect]
     Active Substance: SULFUR HEXAFLUORIDE
     Indication: Ultrasound breast
     Dosage: 4.8 ML, SINGLE
     Route: 042
     Dates: start: 20190402, end: 20190402
  4. SODIUM CHLORIDE [Concomitant]
     Active Substance: SODIUM CHLORIDE
     Indication: Ultrasound breast
     Dosage: 5 ML
     Dates: start: 20190402, end: 20190402

REACTIONS (7)
  - Breast swelling [Recovering/Resolving]
  - Breast pain [Recovering/Resolving]
  - Nipple exudate bloody [Recovering/Resolving]
  - Petechiae [Recovering/Resolving]
  - Jaundice [Recovering/Resolving]
  - Coagulopathy [Recovering/Resolving]
  - Infection [Recovering/Resolving]

NARRATIVE: CASE EVENT DATE: 20190403
